FAERS Safety Report 16710471 (Version 6)
Quarter: 2020Q3

REPORT INFORMATION
  Report Type: Spontaneous
  Country: US (occurrence: US)
  Receive Date: 20190816
  Receipt Date: 20200921
  Transmission Date: 20201102
  Serious: No
  Sender: FDA-Public Use
  Company Number: US-PFIZER INC-2019350740

PATIENT
  Age: 74 Year
  Sex: Female
  Weight: 95.48 kg

DRUGS (21)
  1. BENADRYL [Concomitant]
     Active Substance: DIPHENHYDRAMINE HYDROCHLORIDE
     Dosage: UNK, AS NEEDED
     Dates: end: 2020
  2. LYRICA [Suspect]
     Active Substance: PREGABALIN
     Dosage: 200 MG, 1X/DAY IN THE MORNING (1X AM)
     Route: 048
     Dates: start: 2008
  3. MEMANTINE. [Concomitant]
     Active Substance: MEMANTINE
     Dosage: UNK MG
     Dates: start: 2014
  4. AMITRIPTYLIN [Concomitant]
     Active Substance: AMITRIPTYLINE
     Dosage: UNK
     Dates: start: 2009
  5. LYRICA [Suspect]
     Active Substance: PREGABALIN
     Dosage: 100 MG, DAILY AT BEDTIME
     Route: 048
     Dates: start: 20190808
  6. LYRICA [Suspect]
     Active Substance: PREGABALIN
     Dosage: 100 MG, 2X/DAY (100MG CAPSULE)
     Route: 048
     Dates: start: 20200911
  7. SUCRALFATE. [Concomitant]
     Active Substance: SUCRALFATE
     Dosage: 1000 MG
     Dates: start: 2009, end: 2020
  8. MEMANTINE. [Concomitant]
     Active Substance: MEMANTINE
     Dosage: 10 MG
     Dates: start: 2016
  9. CYMBALTA [Concomitant]
     Active Substance: DULOXETINE HYDROCHLORIDE
     Dosage: 30 MG
     Dates: end: 2020
  10. LYRICA [Suspect]
     Active Substance: PREGABALIN
     Indication: FIBROMYALGIA
     Dosage: 200 MG, 1X/DAY IN THE MORNING (1X AM)
     Route: 048
     Dates: start: 200403
  11. LYRICA [Suspect]
     Active Substance: PREGABALIN
     Dosage: 200 MG, 1X/DAY (EVERY MORNING)
     Route: 048
     Dates: start: 20190808
  12. BUPROPION. [Concomitant]
     Active Substance: BUPROPION
     Dosage: 150 MG, 1X/DAY (1XAM)
     Dates: start: 2014, end: 2020
  13. PROAIR HFA [Concomitant]
     Active Substance: ALBUTEROL SULFATE
     Dosage: UNK
  14. LYRICA [Suspect]
     Active Substance: PREGABALIN
     Dosage: 100 MG, 1X/DAY AT NIGHT (1X PM)
     Route: 048
     Dates: start: 2008
  15. ENTRESTO [Concomitant]
     Active Substance: SACUBITRIL\VALSARTAN
     Dosage: UNK (49?51)
     Dates: start: 2016
  16. KLOR?CON [Concomitant]
     Active Substance: POTASSIUM CHLORIDE
     Dosage: UNK (10)
     Dates: start: 2009
  17. TAMSULOSIN [Concomitant]
     Active Substance: TAMSULOSIN
     Dosage: UNK
     Dates: start: 2009
  18. LYRICA [Suspect]
     Active Substance: PREGABALIN
     Indication: MYALGIA
     Dosage: 100 MG, 1X/DAY AT NIGHT (1X PM)
     Route: 048
     Dates: start: 200403
  19. LASIX [Concomitant]
     Active Substance: FUROSEMIDE
     Dosage: UNK
     Dates: start: 2009
  20. LEVOTHYROXIN [Concomitant]
     Active Substance: LEVOTHYROXINE
     Dosage: 125 UG
     Dates: start: 2009
  21. CARVEDILOL. [Concomitant]
     Active Substance: CARVEDILOL
     Dosage: UNK (12.5)
     Dates: start: 2002

REACTIONS (5)
  - Hot flush [Unknown]
  - Drug ineffective [Not Recovered/Not Resolved]
  - Cold sweat [Unknown]
  - Feeling abnormal [Recovered/Resolved]
  - Weight decreased [Recovered/Resolved]
